FAERS Safety Report 5611629-7 (Version None)
Quarter: 2008Q1

REPORT INFORMATION
  Report Type: 
  Country: None (occurrence: None)
  Receive Date: 20080201
  Receipt Date: 20080123
  Transmission Date: 20080703
  Serious: Yes (Hospitalization)
  Sender: FDA-Public Use
  Company Number: BE-ABBOTT-07P-013-0372293-00

PATIENT
  Sex: Male

DRUGS (4)
  1. NORVIR [Suspect]
     Indication: HIV INFECTION
     Dates: start: 20070530
  2. FOSAMPRENAVIR [Concomitant]
     Indication: DRUG USE FOR UNKNOWN INDICATION
     Dates: start: 20070530
  3. ABACAVIR SULFATE W/LAMIVUDINE [Concomitant]
     Indication: DRUG USE FOR UNKNOWN INDICATION
     Dates: start: 20070530
  4. DAPSONE [Concomitant]
     Indication: ANTIFUNGAL PROPHYLAXIS

REACTIONS (12)
  - ABDOMINAL PAIN UPPER [None]
  - ANAEMIA [None]
  - BACTERIAL CULTURE POSITIVE [None]
  - CHILLS [None]
  - COUGH [None]
  - ENTEROCOLITIS INFECTIOUS [None]
  - HYPERHIDROSIS [None]
  - LYMPHADENOPATHY [None]
  - MUSCULOSKELETAL STIFFNESS [None]
  - MYCOBACTERIUM AVIUM COMPLEX INFECTION [None]
  - PRODUCTIVE COUGH [None]
  - STAPHYLOCOCCAL SEPSIS [None]
